FAERS Safety Report 9467726 (Version 1)
Quarter: 2013Q3

REPORT INFORMATION
  Report Type: Spontaneous
  Country: US (occurrence: None)
  Receive Date: 20130819
  Receipt Date: 20130819
  Transmission Date: 20140515
  Serious: Yes (Hospitalization, Disabling)
  Sender: FDA-Public Use
  Company Number: None

PATIENT
  Age: 27 Year
  Sex: Male

DRUGS (1)
  1. CIPRO [Suspect]
     Indication: PROSTATE INFECTION
     Route: 048

REACTIONS (4)
  - Panic attack [None]
  - Exercise tolerance decreased [None]
  - Quality of life decreased [None]
  - Activities of daily living impaired [None]
